FAERS Safety Report 4395435-X (Version None)
Quarter: 2004Q3

REPORT INFORMATION
  Report Type: 
  Country: None (occurrence: None)
  Receive Date: 20040713
  Receipt Date: 20040701
  Transmission Date: 20050211
  Serious: Yes (Hospitalization)
  Sender: FDA-Public Use
  Company Number: 200412628FR

PATIENT
  Age: 66 Year
  Sex: Female

DRUGS (6)
  1. ARAVA [Suspect]
     Indication: RHEUMATOID ARTHRITIS
     Route: 048
     Dates: start: 20040101
  2. PROPOFAN                           /00765201/ [Concomitant]
     Route: 048
  3. CELEBREX [Concomitant]
     Route: 048
  4. PLAVIX [Concomitant]
     Route: 048
  5. ISOPTIN [Concomitant]
     Route: 048
  6. PRAVASTATIN SODIUM [Concomitant]
     Route: 048

REACTIONS (1)
  - CONGESTIVE CARDIOMYOPATHY [None]
